FAERS Safety Report 5581867-0 (Version None)
Quarter: 2008Q1

REPORT INFORMATION
  Report Type: 
  Country: None (occurrence: None)
  Receive Date: 20080104
  Receipt Date: 20071227
  Transmission Date: 20080703
  Serious: Yes (Death)
  Sender: FDA-Public Use
  Company Number: JP-ELI_LILLY_AND_COMPANY-JP200711003733

PATIENT
  Sex: Male
  Weight: 44 kg

DRUGS (6)
  1. GEMCITABINE HCL [Suspect]
     Indication: PLEURAL MESOTHELIOMA MALIGNANT
     Dosage: 600 MG/M2, OTHER
     Route: 042
     Dates: start: 20070410, end: 20070424
  2. GEMCITABINE HCL [Suspect]
     Dosage: 600 MG/M2, OTHER
     Route: 042
     Dates: start: 20070518, end: 20070803
  3. CARBOPLATIN [Concomitant]
     Indication: PLEURAL MESOTHELIOMA MALIGNANT
     Dosage: 250 MG, OTHER
     Route: 042
     Dates: start: 20070410, end: 20070410
  4. KYTRIL [Concomitant]
     Indication: PROPHYLAXIS
     Dosage: 3 MG, UNKNOWN
     Route: 042
     Dates: start: 20061218, end: 20070803
  5. DECADRON /00016002/ [Concomitant]
     Indication: PROPHYLAXIS
     Dosage: 8 MG, UNKNOWN
     Route: 042
     Dates: start: 20061218, end: 20070803
  6. TAKEPRON [Concomitant]
     Indication: REFLUX OESOPHAGITIS
     Dosage: 30 MG/M2, DAILY (1/D)
     Route: 048
     Dates: start: 20070113, end: 20070928

REACTIONS (2)
  - MALIGNANT NEOPLASM PROGRESSION [None]
  - MYELODYSPLASTIC SYNDROME [None]
